FAERS Safety Report 14175397 (Version 1)
Quarter: 2017Q4

REPORT INFORMATION
  Report Type: Report from Study
  Country: GB (occurrence: GB)
  Receive Date: 20171109
  Receipt Date: 20171109
  Transmission Date: 20180321
  Serious: Yes (Hospitalization, Other)
  Sender: FDA-Public Use
  Company Number: GB-PFIZER INC-2017475240

PATIENT
  Age: 54 Year
  Sex: Male

DRUGS (5)
  1. CAMPATH [Suspect]
     Active Substance: ALEMTUZUMAB
     Dosage: UNK
  2. ADVAGRAF [Suspect]
     Active Substance: TACROLIMUS
     Dosage: UNK
  3. MYFORTIC [Suspect]
     Active Substance: MYCOPHENOLATE SODIUM
     Indication: RENAL TRANSPLANT
  4. RAPAMUNE [Suspect]
     Active Substance: SIROLIMUS
     Indication: RENAL TRANSPLANT
     Dosage: UNK
     Dates: start: 20120203
  5. SIMULECT [Suspect]
     Active Substance: BASILIXIMAB
     Dosage: UNK

REACTIONS (10)
  - Lethargy [Unknown]
  - Toxicity to various agents [Recovered/Resolved]
  - Complications of transplanted kidney [Not Recovered/Not Resolved]
  - Urinary tract infection bacterial [Recovered/Resolved]
  - Delayed graft function [Unknown]
  - Asthenia [Unknown]
  - Pyelonephritis [Recovered/Resolved]
  - Mouth ulceration [Recovered/Resolved]
  - Haemoglobin decreased [Recovered/Resolved]
  - Malaise [Unknown]

NARRATIVE: CASE EVENT DATE: 20110805
